FAERS Safety Report 7099432-5 (Version None)
Quarter: 2010Q4

REPORT INFORMATION
  Report Type: 
  Country: None (occurrence: None)
  Receive Date: 20101112
  Receipt Date: 20080924
  Transmission Date: 20110411
  Serious: No
  Sender: FDA-Public Use
  Company Number: US-KINGPHARMUSA00001-K200801128

PATIENT
  Age: 63 Year
  Sex: Female
  Weight: 49.887 kg

DRUGS (3)
  1. LEVOXYL [Suspect]
     Indication: HYPOTHYROIDISM
     Dosage: 50 MCG, QD
     Route: 048
     Dates: start: 19960101, end: 20080919
  2. LEVOXYL [Suspect]
     Dosage: 25 MCG, UNK
     Dates: start: 20080919
  3. LORATADINE [Concomitant]
     Indication: HYPERSENSITIVITY
     Dosage: UNK, QOD
     Route: 048

REACTIONS (14)
  - COUGH [None]
  - DYSPEPSIA [None]
  - FATIGUE [None]
  - FEELING JITTERY [None]
  - FREQUENT BOWEL MOVEMENTS [None]
  - HEART RATE IRREGULAR [None]
  - INFLUENZA [None]
  - INSOMNIA [None]
  - MUSCLE SPASMS [None]
  - MUSCULAR WEAKNESS [None]
  - MUSCULOSKELETAL DISCOMFORT [None]
  - PSYCHOMOTOR HYPERACTIVITY [None]
  - TEMPERATURE INTOLERANCE [None]
  - WEIGHT DECREASED [None]
